FAERS Safety Report 13661080 (Version 2)
Quarter: 2017Q2

REPORT INFORMATION
  Report Type: Report from Study
  Country: US (occurrence: US)
  Receive Date: 20170616
  Receipt Date: 20170630
  Transmission Date: 20170830
  Serious: Yes (Hospitalization)
  Sender: FDA-Public Use
  Company Number: US-BRISTOL-MYERS SQUIBB COMPANY-BMS-2017-052079

PATIENT
  Age: 61 Year
  Sex: Male
  Weight: 120.9 kg

DRUGS (6)
  1. CALCIUM/VITAMIN D                  /01204201/ [Concomitant]
     Active Substance: CALCIUM CARBONATE\ERGOCALCIFEROL
     Indication: PRODUCT USED FOR UNKNOWN INDICATION
     Dosage: UNK, QD
     Route: 048
  2. LUPRON [Concomitant]
     Active Substance: LEUPROLIDE ACETATE
     Indication: PRODUCT USED FOR UNKNOWN INDICATION
     Route: 065
  3. IPILIMUMAB [Suspect]
     Active Substance: IPILIMUMAB
     Indication: PROSTATE CANCER
     Dosage: 1 MG/KG, UNK
     Route: 065
     Dates: start: 20170502
  4. PROSTVAC [Suspect]
     Active Substance: RILIMOGENE GALVACIREPVEC
     Indication: PROSTATE CANCER
     Dosage: UNK UNK, Q3MO
     Route: 058
     Dates: start: 20170502
  5. NIVOLUMAB [Suspect]
     Active Substance: NIVOLUMAB
     Indication: PROSTATE CANCER
     Dosage: 240 MG, UNK
     Route: 065
  6. PROSTVAC [Suspect]
     Active Substance: RILIMOGENE GALVACIREPVEC
     Indication: PRODUCT USED FOR UNKNOWN INDICATION
     Dosage: UNK
     Route: 065
     Dates: start: 20170418, end: 20170418

REACTIONS (1)
  - Cystitis noninfective [Recovered/Resolved]

NARRATIVE: CASE EVENT DATE: 20170607
